FAERS Safety Report 7914642-X (Version None)
Quarter: 2011Q4

REPORT INFORMATION
  Report Type: 
  Country: None (occurrence: None)
  Receive Date: 20111115
  Receipt Date: 20111108
  Transmission Date: 20120403
  Serious: Yes (Death, Hospitalization)
  Sender: FDA-Public Use
  Company Number: PHHY2011IL099016

PATIENT
  Age: 85 Year
  Sex: Female

DRUGS (1)
  1. RASILEZ [Suspect]
     Dosage: 150 MG,
     Route: 048

REACTIONS (3)
  - DEATH [None]
  - CARDIAC DISORDER [None]
  - HEART VALVE REPLACEMENT [None]
